FAERS Safety Report 24174752 (Version 1)
Quarter: 2024Q3

REPORT INFORMATION
  Report Type: Spontaneous
  Country: CN (occurrence: CN)
  Receive Date: 20240805
  Receipt Date: 20240805
  Transmission Date: 20241017
  Serious: Yes (Hospitalization)
  Sender: SANOFI AVENTIS
  Company Number: CN-SA-SAC20240802000049

PATIENT
  Age: 59 Year
  Sex: Male
  Weight: 50 kg

DRUGS (3)
  1. CLOPIDOGREL BISULFATE [Suspect]
     Active Substance: CLOPIDOGREL BISULFATE
     Indication: Thrombosis prophylaxis
     Dosage: 75 MG, QD
     Route: 048
     Dates: start: 20240522, end: 20240711
  2. INDOBUFEN [Suspect]
     Active Substance: INDOBUFEN
     Indication: Thrombosis prophylaxis
     Dosage: 200 MG, QD
     Route: 048
     Dates: start: 20240522, end: 20240704
  3. INDOBUFEN [Suspect]
     Active Substance: INDOBUFEN
     Dosage: 100MG, QD
     Route: 048
     Dates: start: 20240708, end: 20240711

REACTIONS (5)
  - Asthenia [Not Recovered/Not Resolved]
  - Abdominal discomfort [Not Recovered/Not Resolved]
  - Abdominal rigidity [Not Recovered/Not Resolved]
  - Abdominal pain upper [Recovering/Resolving]
  - Condition aggravated [Recovering/Resolving]

NARRATIVE: CASE EVENT DATE: 20240703
